FAERS Safety Report 9777669 (Version 1)
Quarter: 2013Q4

REPORT INFORMATION
  Report Type: Spontaneous
  Country: US (occurrence: US)
  Receive Date: 20131223
  Receipt Date: 20131223
  Transmission Date: 20140711
  Serious: No
  Sender: FDA-Public Use
  Company Number: US-009507513-1312USA004196

PATIENT
  Age: 73 Year
  Sex: Female

DRUGS (2)
  1. DULERA [Suspect]
     Indication: ASTHMA
     Dosage: 100/5MCG TWICE DAILY
     Route: 055
     Dates: start: 20131205
  2. ZOCOR [Concomitant]
     Dosage: UNK
     Route: 048

REACTIONS (2)
  - Vomiting [Not Recovered/Not Resolved]
  - Cough [Not Recovered/Not Resolved]
